FAERS Safety Report 12155433 (Version 1)
Quarter: 2016Q1

REPORT INFORMATION
  Report Type: Spontaneous
  Country: SG (occurrence: SG)
  Receive Date: 20160307
  Receipt Date: 20160307
  Transmission Date: 20160526
  Serious: Yes (Other)
  Sender: FDA-Public Use
  Company Number: SG-BAYER-2016-037973

PATIENT
  Age: 72 Year
  Sex: Female

DRUGS (1)
  1. ACARBOSE. [Suspect]
     Active Substance: ACARBOSE
     Dosage: UNK

REACTIONS (1)
  - Pruritus [Unknown]

NARRATIVE: CASE EVENT DATE: 20151231
